FAERS Safety Report 6633077-3 (Version None)
Quarter: 2010Q1

REPORT INFORMATION
  Report Type: 
  Country: None (occurrence: None)
  Receive Date: 20100312
  Receipt Date: 20100301
  Transmission Date: 20100710
  Serious: Yes (Other)
  Sender: FDA-Public Use
  Company Number: PHEH2010US02240

PATIENT
  Sex: Male
  Weight: 107.3 kg

DRUGS (3)
  1. GLEEVEC [Suspect]
     Dosage: 400 MG, QD
     Route: 048
     Dates: start: 20080414, end: 20080415
  2. INDOMETHACIN [Concomitant]
     Indication: GOUT
  3. LISINOPRIL [Concomitant]
     Indication: HYPERTENSION

REACTIONS (31)
  - ANAEMIA [None]
  - ARTERIOSCLEROSIS CORONARY ARTERY [None]
  - ARTHRALGIA [None]
  - ARTHRITIS [None]
  - ASTHENIA [None]
  - BASOPHILIA [None]
  - CHEST PAIN [None]
  - CHRONIC MYELOID LEUKAEMIA [None]
  - CORONARY ARTERY OCCLUSION [None]
  - DIABETES MELLITUS [None]
  - DIARRHOEA [None]
  - DRUG INTOLERANCE [None]
  - DYSPEPSIA [None]
  - DYSSTASIA [None]
  - EOSINOPHILIA [None]
  - FAECES DISCOLOURED [None]
  - GASTRIC DISORDER [None]
  - GOUT [None]
  - GOUTY ARTHRITIS [None]
  - HYPERCHOLESTEROLAEMIA [None]
  - JOINT SWELLING [None]
  - LEUKOCYTOSIS [None]
  - MUSCULOSKELETAL PAIN [None]
  - MYELOPROLIFERATIVE DISORDER [None]
  - NAUSEA [None]
  - NECK PAIN [None]
  - PAIN [None]
  - RECTAL POLYP [None]
  - THROMBOCYTOPENIA [None]
  - VISUAL IMPAIRMENT [None]
  - VOMITING [None]
